FAERS Safety Report 12329094 (Version 1)
Quarter: 2016Q2

REPORT INFORMATION
  Report Type: Spontaneous
  Country: CA (occurrence: CA)
  Receive Date: 20160503
  Receipt Date: 20160503
  Transmission Date: 20160815
  Serious: Yes (Hospitalization)
  Sender: FDA-Public Use
  Company Number: CA-IMPAX LABORATORIES, INC-2016-IPXL-00464

PATIENT
  Age: 45 Year

DRUGS (7)
  1. LEVETIRACETAM. [Concomitant]
     Active Substance: LEVETIRACETAM
     Indication: STATUS EPILEPTICUS
     Dosage: 1500 MG, 2 /DAY
     Route: 065
  2. TOPIRAMATE. [Interacting]
     Active Substance: TOPIRAMATE
     Indication: STATUS EPILEPTICUS
     Dosage: 200 MG, 2 /DAY
     Route: 065
  3. DIVALPROEX SODIUM ER [Suspect]
     Active Substance: DIVALPROEX SODIUM
     Indication: STATUS EPILEPTICUS
     Dosage: UNK
     Route: 048
  4. DIVALPROEX SODIUM ER [Interacting]
     Active Substance: DIVALPROEX SODIUM
     Dosage: UNK
     Route: 048
  5. CLONAZEPAM. [Concomitant]
     Active Substance: CLONAZEPAM
     Indication: STATUS EPILEPTICUS
     Dosage: 1 MG, 2 /DAY
     Route: 065
  6. PHENYTOIN. [Concomitant]
     Active Substance: PHENYTOIN
     Indication: STATUS EPILEPTICUS
     Dosage: UNK
     Route: 042
  7. DIVALPROEX SODIUM ER [Interacting]
     Active Substance: DIVALPROEX SODIUM
     Dosage: 750 MG, 3 /DAY
     Route: 048

REACTIONS (3)
  - Hyperammonaemia [Recovered/Resolved]
  - Drug interaction [Recovered/Resolved]
  - Encephalopathy [Recovered/Resolved]
